FAERS Safety Report 12056640 (Version 3)
Quarter: 2016Q1

REPORT INFORMATION
  Report Type: Report from Study
  Country: US (occurrence: US)
  Receive Date: 20160209
  Receipt Date: 20160315
  Transmission Date: 20160526
  Serious: Yes (Hospitalization)
  Sender: FDA-Public Use
  Company Number: US-ACTELION-A-US2016-129946

PATIENT
  Age: 67 Year
  Sex: Male

DRUGS (4)
  1. RIOCIGUAT [Concomitant]
     Active Substance: RIOCIGUAT
  2. VELETRI [Suspect]
     Active Substance: EPOPROSTENOL
     Indication: PULMONARY ARTERIAL HYPERTENSION
     Dosage: 22 NG/KG, PER MIN
     Route: 042
     Dates: start: 20131113
  3. COUMADIN [Concomitant]
     Active Substance: WARFARIN SODIUM
  4. MACITENTAN [Suspect]
     Active Substance: MACITENTAN
     Indication: PULMONARY ARTERIAL HYPERTENSION
     Dosage: 10 MG, QD
     Route: 048
     Dates: start: 20141017

REACTIONS (5)
  - Upper respiratory tract infection [Unknown]
  - Decreased appetite [Unknown]
  - Nasal congestion [Unknown]
  - Dyspnoea [Recovering/Resolving]
  - Cough [Unknown]
